FAERS Safety Report 15909007 (Version 7)
Quarter: 2020Q1

REPORT INFORMATION
  Report Type: Report from Study
  Country: US (occurrence: US)
  Receive Date: 20190204
  Receipt Date: 20200330
  Transmission Date: 20200409
  Serious: Yes (Hospitalization, Other)
  Sender: FDA-Public Use
  Company Number: US-ACTELION-A-US2019-185699

PATIENT
  Age: 44 Year
  Sex: Female
  Weight: 66.67 kg

DRUGS (2)
  1. OPSUMIT [Suspect]
     Active Substance: MACITENTAN
     Indication: PULMONARY ARTERIAL HYPERTENSION
     Dosage: 10 MG, QD
     Route: 048
  2. REMODULIN [Suspect]
     Active Substance: TREPROSTINIL
     Indication: PRODUCT USED FOR UNKNOWN INDICATION
     Route: 065

REACTIONS (16)
  - Abdominal pain lower [Unknown]
  - Limb discomfort [Unknown]
  - Groin pain [Unknown]
  - Neuropathy peripheral [Unknown]
  - Pain in jaw [Unknown]
  - Catheter site infection [Unknown]
  - Diarrhoea [Unknown]
  - Headache [Unknown]
  - Influenza [Unknown]
  - Pain in extremity [Unknown]
  - Back pain [Unknown]
  - Nausea [Unknown]
  - Thyroid disorder [Unknown]
  - Thyroid operation [Unknown]
  - Vomiting [Unknown]
  - Lymphadenopathy [Unknown]

NARRATIVE: CASE EVENT DATE: 201901
